FAERS Safety Report 9196324 (Version 1)
Quarter: 2013Q1

REPORT INFORMATION
  Report Type: Spontaneous
  Country: DO (occurrence: DO)
  Receive Date: 20130328
  Receipt Date: 20130328
  Transmission Date: 20140127
  Serious: Yes (Hospitalization)
  Sender: FDA-Public Use
  Company Number: DO-SANOFI-AVENTIS-200614941EU

PATIENT
  Age: 57 Year
  Sex: Female
  Weight: 52.62 kg

DRUGS (2)
  1. FUROSEMIDE [Suspect]
     Indication: PRODUCT USED FOR UNKNOWN INDICATION
     Route: 048
  2. NO MENTION OF CONCOMITANT DRUG [Concomitant]

REACTIONS (6)
  - Pseudo-Bartter syndrome [Unknown]
  - Hypokalaemia [Unknown]
  - Tachycardia [Unknown]
  - Hypotension [Unknown]
  - Dehydration [Unknown]
  - Nephrocalcinosis [Unknown]
